FAERS Safety Report 14627288 (Version 2)
Quarter: 2018Q2

REPORT INFORMATION
  Report Type: Report from Study
  Country: IL (occurrence: IL)
  Receive Date: 20180312
  Receipt Date: 20180404
  Transmission Date: 20180711
  Serious: Yes (Death)
  Sender: FDA-Public Use
  Company Number: IL-PFIZER INC-2018096760

PATIENT

DRUGS (11)
  1. TRIMETHOPRIM SULFAMETHOXAZOLE [Concomitant]
     Active Substance: SULFAMETHOXAZOLE\TRIMETHOPRIM
     Indication: SUPPORTIVE CARE
     Dosage: UNK (UNTIL DAY -2, HIGH DOSE)
  2. CYTARABINE. [Suspect]
     Active Substance: CYTARABINE
     Indication: LYMPHOMA
     Dosage: CYCLIC (FROM DAY -4 TO -1)
  3. MELPHALAN. [Suspect]
     Active Substance: MELPHALAN
     Indication: LYMPHOMA
     Dosage: CYCLIC (ON DAYS -2 AND -1)
  4. ETOPOSIDE. [Suspect]
     Active Substance: ETOPOSIDE
     Indication: LYMPHOMA
     Dosage: CYCLIC (FROM DAY -6 TO -3)
  5. TRIMETHOPRIM SULFAMETHOXAZOLE [Concomitant]
     Active Substance: SULFAMETHOXAZOLE\TRIMETHOPRIM
     Dosage: UNK (REINSTITUTED FOR A PERIOD OF 6 MONTHS AFTER RECOVERY FROM NEUTROPENIA)
  6. NEUPOGEN [Concomitant]
     Active Substance: FILGRASTIM
     Dosage: 5 UG/KG, DAILY (STARTING FROM DAY +6 UNTIL STABLE ENGRAFTMENT OF NEUTROPHILS)
     Route: 058
  7. CYCLOPHOSPHAMIDE. [Suspect]
     Active Substance: CYCLOPHOSPHAMIDE
     Indication: LYMPHOMA
     Dosage: CYCLIC (ON DAY -3)
  8. THIOTEPA. [Suspect]
     Active Substance: THIOTEPA
     Indication: LYMPHOMA
     Dosage: CYCLIC (FROM DAY -5 TO -2)
  9. ACYCLOVIR /00587301/ [Concomitant]
     Active Substance: ACYCLOVIR
     Indication: SUPPORTIVE CARE
     Dosage: UNK (FROM THE INITIATION OF THERAPY UNTIL DAY +120)
  10. NEUPOGEN [Concomitant]
     Active Substance: FILGRASTIM
     Indication: PERIPHERAL BLOOD STEM CELL APHERESIS
     Dosage: 5 UG/KG, 2X/DAY (FOR 5 DAYS)
     Route: 058
  11. ALLOPURINOL. [Concomitant]
     Active Substance: ALLOPURINOL
     Indication: SUPPORTIVE CARE
     Dosage: UNK (UNTIL DAY -1)

REACTIONS (1)
  - Multiple organ dysfunction syndrome [Fatal]
